FAERS Safety Report 9611556 (Version 1)
Quarter: 2013Q4

REPORT INFORMATION
  Report Type: Spontaneous
  Country: JP (occurrence: JP)
  Receive Date: 20131010
  Receipt Date: 20131010
  Transmission Date: 20140711
  Serious: Yes (Other)
  Sender: FDA-Public Use
  Company Number: PHHY2013JP113269

PATIENT
  Age: 74 Year
  Sex: Male

DRUGS (2)
  1. RIVASTIGMIN [Suspect]
     Indication: DEMENTIA WITH LEWY BODIES
     Dosage: 4.5 MG, QD
     Route: 062
  2. RIVASTIGMIN [Suspect]
     Indication: OFF LABEL USE
     Dosage: 9 MG, DAILY
     Dates: end: 201309

REACTIONS (4)
  - Dysphagia [Unknown]
  - Pneumonia aspiration [Unknown]
  - Impulsive behaviour [Unknown]
  - Salivary hypersecretion [Unknown]
